FAERS Safety Report 16169881 (Version 1)
Quarter: 2019Q2

REPORT INFORMATION
  Report Type: Spontaneous
  Country: JP (occurrence: JP)
  Receive Date: 20190408
  Receipt Date: 20190408
  Transmission Date: 20190711
  Serious: Yes (Hospitalization, Other)
  Sender: FDA-Public Use
  Company Number: JP-ACTELION-A-CH2019-188627

PATIENT
  Age: 9 Year
  Sex: Female

DRUGS (3)
  1. BERAPROST [Concomitant]
     Active Substance: BERAPROST
     Indication: PULMONARY ARTERIAL HYPERTENSION
     Dosage: 30 MCG
  2. TADALAFIL. [Concomitant]
     Active Substance: TADALAFIL
     Indication: PULMONARY ARTERIAL HYPERTENSION
     Dosage: 25 MG
  3. TRACLEER [Suspect]
     Active Substance: BOSENTAN
     Indication: PULMONARY ARTERIAL HYPERTENSION
     Dosage: 125 MG
     Route: 048

REACTIONS (12)
  - Pulmonary hypertensive crisis [Recovered/Resolved]
  - Dyspnoea [Unknown]
  - Vasospasm [Recovered/Resolved]
  - Palpitations [Recovered/Resolved]
  - Right ventricular failure [Recovered/Resolved]
  - Stress cardiomyopathy [Recovered/Resolved]
  - Dizziness [Unknown]
  - Chest discomfort [Recovered/Resolved]
  - Tachycardia [Recovered/Resolved]
  - Blood pressure decreased [Unknown]
  - Loss of consciousness [Unknown]
  - Chest pain [Recovered/Resolved]
